FAERS Safety Report 20827817 (Version 1)
Quarter: 2022Q2

REPORT INFORMATION
  Report Type: Spontaneous
  Country: US (occurrence: None)
  Receive Date: 20220513
  Receipt Date: 20220513
  Transmission Date: 20220721
  Serious: Yes (Hospitalization)
  Sender: FDA-Public Use
  Company Number: None

PATIENT
  Age: 68 Year
  Sex: Male
  Weight: 89 kg

DRUGS (1)
  1. LUMASON [Suspect]
     Active Substance: SULFUR HEXAFLUORIDE
     Indication: X-ray with contrast
     Route: 042
     Dates: start: 20220511, end: 20220511

REACTIONS (10)
  - Abdominal pain [None]
  - Nausea [None]
  - Chills [None]
  - Chills [None]
  - Seizure [None]
  - Feeling cold [None]
  - Dyspnoea [None]
  - Blood pressure decreased [None]
  - Disorientation [None]
  - Retching [None]

NARRATIVE: CASE EVENT DATE: 20220511
